FAERS Safety Report 5002187-9 (Version None)
Quarter: 2006Q2

REPORT INFORMATION
  Report Type: 
  Country: None (occurrence: None)
  Receive Date: 20060510
  Receipt Date: 20060504
  Transmission Date: 20061013
  Serious: Yes (Other)
  Sender: FDA-Public Use
  Company Number: 2006-05-0201

PATIENT
  Sex: Female

DRUGS (3)
  1. NASONEX [Suspect]
     Indication: MULTIPLE ALLERGIES
     Dosage: NASAL SPRAY
     Route: 045
     Dates: start: 20060201
  2. FLONASE [Suspect]
     Indication: MULTIPLE ALLERGIES
     Dosage: NASAL SPRAY
     Route: 045
     Dates: end: 20060201
  3. SYNTHROID [Concomitant]

REACTIONS (4)
  - COMA [None]
  - FALL [None]
  - PHARMACEUTICAL PRODUCT COMPLAINT [None]
  - TOXIC SHOCK SYNDROME [None]
